FAERS Safety Report 11235802 (Version 1)
Quarter: 2015Q3

REPORT INFORMATION
  Report Type: Spontaneous
  Country: FR (occurrence: FR)
  Receive Date: 20150702
  Receipt Date: 20150702
  Transmission Date: 20151125
  Serious: Yes (Hospitalization)
  Sender: FDA-Public Use
  Company Number: PHHY2015FR078057

PATIENT
  Age: 43 Year
  Sex: Male

DRUGS (5)
  1. RAMIPRIL/HYDROCHLOORTHIAZIDE [Concomitant]
     Route: 048
  2. ZOLPIDEM [Suspect]
     Active Substance: ZOLPIDEM\ZOLPIDEM TARTRATE
     Indication: SUICIDE ATTEMPT
     Dosage: 10 MG, UNK
     Route: 048
  3. ESCITALOPRAM [Concomitant]
     Active Substance: ESCITALOPRAM OXALATE
     Dosage: 100 MG, UNK
     Route: 048
  4. LORAZEPAM. [Concomitant]
     Active Substance: LORAZEPAM
     Dosage: 6 MG, UNK
     Route: 048
  5. BACLOFEN. [Suspect]
     Active Substance: BACLOFEN
     Indication: SUICIDE ATTEMPT
     Dosage: 25 MG, UNK
     Route: 048

REACTIONS (6)
  - Withdrawal syndrome [Unknown]
  - Alcohol poisoning [Unknown]
  - Toxic encephalopathy [Unknown]
  - Intentional product misuse [Unknown]
  - Suicide attempt [Unknown]
  - Loss of consciousness [Unknown]
